FAERS Safety Report 12573835 (Version 2)
Quarter: 2016Q3

REPORT INFORMATION
  Report Type: Spontaneous
  Country: US (occurrence: US)
  Receive Date: 20160720
  Receipt Date: 20160916
  Transmission Date: 20161109
  Serious: Yes (Other)
  Sender: FDA-Public Use
  Company Number: US-BAYER-2016-135719

PATIENT
  Age: 41 Year
  Sex: Male

DRUGS (1)
  1. BETASERON [Suspect]
     Active Substance: INTERFERON BETA-1B
     Indication: MULTIPLE SCLEROSIS
     Dosage: UNK

REACTIONS (15)
  - Eating disorder [Recovering/Resolving]
  - Fatigue [Recovering/Resolving]
  - Hypoaesthesia [None]
  - Multiple sclerosis relapse [Recovering/Resolving]
  - Discomfort [Recovering/Resolving]
  - Hypoaesthesia [Recovering/Resolving]
  - Tinnitus [Recovering/Resolving]
  - Balance disorder [Recovering/Resolving]
  - Dyskinesia [Recovering/Resolving]
  - Speech disorder [Recovering/Resolving]
  - Multiple sclerosis relapse [Recovering/Resolving]
  - Band sensation [Recovering/Resolving]
  - Gait disturbance [Recovering/Resolving]
  - Facial paralysis [Recovering/Resolving]
  - Vertigo [Recovering/Resolving]

NARRATIVE: CASE EVENT DATE: 2016
